FAERS Safety Report 25038474 (Version 3)
Quarter: 2025Q2

REPORT INFORMATION
  Report Type: Report from Study
  Country: US (occurrence: US)
  Receive Date: 20250304
  Receipt Date: 20250523
  Transmission Date: 20250717
  Serious: No
  Sender: SANDOZ
  Company Number: US-SANDOZ-SDZ2024US044873

PATIENT
  Sex: Male
  Weight: 23.129 kg

DRUGS (4)
  1. OMNITROPE [Suspect]
     Active Substance: SOMATROPIN
     Dosage: 0.8 MG, QD
     Route: 058
     Dates: start: 20240408, end: 20240421
  2. OMNITROPE [Suspect]
     Active Substance: SOMATROPIN
     Dosage: 0.8 MG, QD
     Route: 058
     Dates: start: 20240408, end: 20240421
  3. OMNITROPE [Suspect]
     Active Substance: SOMATROPIN
     Indication: Hypopituitarism
     Route: 065
  4. OMNITROPE [Suspect]
     Active Substance: SOMATROPIN
     Indication: Hypopituitarism
     Route: 065

REACTIONS (5)
  - Injection site rash [Recovered/Resolved]
  - Wrong device used [Unknown]
  - Incorrect dose administered by device [Unknown]
  - Product colour issue [Unknown]
  - Incorrect drug administration rate [Unknown]
